FAERS Safety Report 16182605 (Version 1)
Quarter: 2019Q2

REPORT INFORMATION
  Report Type: Spontaneous
  Country: US (occurrence: US)
  Receive Date: 20190411
  Receipt Date: 20190411
  Transmission Date: 20190711
  Serious: Yes (Other)
  Sender: FDA-Public Use
  Company Number: US-INVENTIA-000283

PATIENT
  Age: 37 Year
  Sex: Female

DRUGS (1)
  1. DULOXETINE. [Suspect]
     Active Substance: DULOXETINE
     Indication: DEPRESSION
     Dosage: ALSO RECEIVED 40 MG DAILY AT 9 AM

REACTIONS (1)
  - Drug-induced liver injury [Recovered/Resolved]
